FAERS Safety Report 9281762 (Version 3)
Quarter: 2013Q4

REPORT INFORMATION
  Report Type: Spontaneous
  Country: GR (occurrence: GR)
  Receive Date: 20130510
  Receipt Date: 20131104
  Transmission Date: 20140711
  Serious: Yes (Death, Life-Threatening, Hospitalization, Disabling, Other)
  Sender: FDA-Public Use
  Company Number: GR-B.I. PHARMACEUTICALS,INC./RIDGEFIELD-2013-BI-12478GB

PATIENT
  Age: 77 Year
  Sex: Female

DRUGS (16)
  1. PRADAXA [Suspect]
     Indication: ATRIAL FIBRILLATION
     Dosage: 220 MG
     Route: 048
     Dates: start: 20130125, end: 20130313
  2. HYDROFLUX [Concomitant]
     Indication: PYREXIA
     Dosage: DOSE PER APPLICATION 4DF DAILY DOSE: 12DF
     Route: 042
     Dates: start: 20130119, end: 20130130
  3. CLOPIDOGREL BISULFATE [Concomitant]
     Dosage: 1 ANZ
     Route: 048
     Dates: start: 20130119, end: 20130130
  4. NEXIUM [Concomitant]
     Dosage: 1 ANZ
     Route: 048
     Dates: start: 20130119, end: 20130130
  5. LOBIVON 5 MG [Concomitant]
     Dosage: 5 MG
     Route: 048
  6. ATACAND 16 MG [Concomitant]
     Dosage: 0.5 MG
     Route: 048
  7. EXELON TRANSDERMAL PATCH [Concomitant]
     Dosage: 1 ANZ
     Route: 062
  8. ANGORON [Concomitant]
     Dosage: 0.0417 ANZ
     Route: 048
     Dates: start: 20130120
  9. DIGOXIN - TABLET [Concomitant]
     Dosage: 0.5 ANZ
     Route: 048
     Dates: start: 20130120, end: 20130121
  10. AKINETON TABLET [Concomitant]
     Indication: CONFUSIONAL STATE
     Route: 048
     Dates: start: 20130120, end: 20130130
  11. ALOPERIDIN [Concomitant]
     Indication: CONFUSIONAL STATE
     Route: 048
     Dates: start: 20130120, end: 20130130
  12. LASIX 40 MG TABLET [Concomitant]
     Dosage: 0.2143 ANZ
     Route: 048
     Dates: end: 20130119
  13. LASIX 40 MG TABLET [Concomitant]
     Dosage: 1 NR
     Route: 048
     Dates: start: 20130130, end: 20130327
  14. CONTROLOC 40 [Concomitant]
     Dosage: 1 ANZ
     Route: 048
     Dates: start: 20130130, end: 20130327
  15. APOTEL 500MG TAB [Concomitant]
     Indication: PAIN IN EXTREMITY
     Dosage: 500 MG
     Route: 048
     Dates: start: 20130122, end: 20130128
  16. APOTEL [Concomitant]
     Indication: PYREXIA
     Dosage: 1 ANZ
     Route: 042
     Dates: start: 20130128, end: 20130128

REACTIONS (10)
  - Cardiac arrest [Fatal]
  - Intestinal haemorrhage [Fatal]
  - Renal failure [Fatal]
  - Septic shock [Fatal]
  - Heart rate decreased [Fatal]
  - Haematocrit decreased [Fatal]
  - Anaemia [Fatal]
  - Defaecation urgency [Recovered/Resolved]
  - Melaena [Recovered/Resolved]
  - Haematochezia [Recovered/Resolved]
